FAERS Safety Report 8093145-9 (Version None)
Quarter: 2012Q1

REPORT INFORMATION
  Report Type: 
  Country: None (occurrence: None)
  Receive Date: 20120128
  Receipt Date: 20110923
  Transmission Date: 20120608
  Serious: No
  Sender: FDA-Public Use
  Company Number: US-ABBOTT-11P-163-0845062-00

PATIENT
  Sex: Male
  Weight: 98.972 kg

DRUGS (2)
  1. HUMIRA [Suspect]
     Indication: PSORIATIC ARTHROPATHY
     Route: 058
     Dates: start: 20090923, end: 20110201
  2. HUMIRA [Suspect]
     Indication: RHEUMATOID ARTHRITIS
     Dates: start: 20110401

REACTIONS (13)
  - WOUND INFECTION STAPHYLOCOCCAL [None]
  - WOUND [None]
  - SKIN STRIAE [None]
  - PAIN IN EXTREMITY [None]
  - WOUND SECRETION [None]
  - PSORIATIC ARTHROPATHY [None]
  - BLOOD CHOLESTEROL INCREASED [None]
  - SKIN WARM [None]
  - CELLULITIS [None]
  - WEIGHT INCREASED [None]
  - OEDEMA PERIPHERAL [None]
  - ERYTHEMA [None]
  - ARTHRALGIA [None]
